FAERS Safety Report 8432776-0 (Version None)
Quarter: 2012Q2

REPORT INFORMATION
  Report Type: 
  Country: None (occurrence: None)
  Receive Date: 20120613
  Receipt Date: 20120608
  Transmission Date: 20120825
  Serious: Yes (Other)
  Sender: FDA-Public Use
  Company Number: US-PFIZER INC-2009314319

PATIENT
  Sex: Female

DRUGS (3)
  1. DILANTIN KAPSEAL [Suspect]
     Indication: CONVULSION
     Dosage: 100 MG AT MORNING, 100 MG AT AFTERNOON AND 300 MG AT BEDTIME
     Route: 048
     Dates: start: 20090804
  2. DILANTIN KAPSEAL [Suspect]
     Indication: STATUS EPILEPTICUS
     Dosage: 100 MG, 3X/DAY
     Route: 048
     Dates: start: 20040121
  3. DILANTIN KAPSEAL [Suspect]
     Dosage: 300 MG, 6 KAPSEAL AT BED TIME
     Route: 048
     Dates: start: 20090813

REACTIONS (1)
  - STEVENS-JOHNSON SYNDROME [None]
